FAERS Safety Report 10449535 (Version 2)
Quarter: 2014Q4

REPORT INFORMATION
  Report Type: Spontaneous
  Country: CN (occurrence: CN)
  Receive Date: 20140912
  Receipt Date: 20141021
  Transmission Date: 20150528
  Serious: Yes (Other)
  Sender: FDA-Public Use
  Company Number: CN-BAYER-2014-133273

PATIENT
  Age: 40 Year
  Sex: Male
  Weight: 49.89 kg

DRUGS (2)
  1. ENTECAVIR. [Concomitant]
     Active Substance: ENTECAVIR
     Indication: HEPATITIS B
  2. NEXAVAR [Suspect]
     Active Substance: SORAFENIB
     Indication: HEPATOCELLULAR CARCINOMA
     Dosage: 400 MG, BID
     Route: 048
     Dates: start: 20140807, end: 20140903

REACTIONS (2)
  - Hepatic cancer recurrent [None]
  - Venoocclusive liver disease [None]

NARRATIVE: CASE EVENT DATE: 2014
